FAERS Safety Report 25548055 (Version 1)
Quarter: 2025Q3

REPORT INFORMATION
  Report Type: Spontaneous
  Country: CN (occurrence: CN)
  Receive Date: 20250714
  Receipt Date: 20250714
  Transmission Date: 20251020
  Serious: Yes (Other)
  Sender: SANOFI AVENTIS
  Company Number: CN-SA-2025SA193536

PATIENT
  Age: 74 Year
  Sex: Female

DRUGS (3)
  1. OXALIPLATIN [Suspect]
     Active Substance: OXALIPLATIN
     Indication: Neoplasm
     Route: 041
     Dates: start: 20250501, end: 20250611
  2. SINTILIMAB [Suspect]
     Active Substance: SINTILIMAB
     Indication: Neoplasm
     Route: 041
     Dates: start: 20250501, end: 20250611
  3. GIMERACIL\OTERACIL\TEGAFUR [Suspect]
     Active Substance: GIMERACIL\OTERACIL POTASSIUM\TEGAFUR
     Indication: Neoplasm
     Dosage: 100 MG, BID
     Route: 048
     Dates: start: 20250501, end: 20250611

REACTIONS (2)
  - Liver injury [Unknown]
  - Bladder disorder [Unknown]

NARRATIVE: CASE EVENT DATE: 20250703
